FAERS Safety Report 9780555 (Version 1)
Quarter: 2013Q4

REPORT INFORMATION
  Report Type: Spontaneous
  Country: US (occurrence: US)
  Receive Date: 20131224
  Receipt Date: 20131224
  Transmission Date: 20140711
  Serious: No
  Sender: FDA-Public Use
  Company Number: US-RB-061353-13

PATIENT
  Sex: Female

DRUGS (3)
  1. MUCINEX FAST MAX CAPLET DAY AND NIGHT UNSPECIFIED [Suspect]
     Indication: RESPIRATORY TRACT CONGESTION
     Dosage: 2 CAPLETS EVERY 4 HOURS
     Route: 048
     Dates: start: 20131215
  2. MUCINEX FAST MAX CAPLET DAY AND NIGHT UNSPECIFIED [Suspect]
     Indication: COUGH
     Dosage: 2 CAPLETS EVERY 4 HOURS
     Route: 048
     Dates: start: 20131215
  3. MUCINEX FAST MAX CAPLET DAY AND NIGHT UNSPECIFIED [Suspect]
     Indication: PYREXIA
     Dosage: 2 CAPLETS EVERY 4 HOURS
     Route: 048
     Dates: start: 20131215

REACTIONS (1)
  - Drug ineffective [Not Recovered/Not Resolved]
